FAERS Safety Report 5237708-4 (Version None)
Quarter: 2007Q1

REPORT INFORMATION
  Report Type: 
  Country: None (occurrence: None)
  Receive Date: 20070214
  Receipt Date: 20070206
  Transmission Date: 20070707
  Serious: Yes (Death, Hospitalization, Other)
  Sender: FDA-Public Use
  Company Number: US-AMGEN-US207590

PATIENT
  Sex: Female

DRUGS (2)
  1. ENBREL [Suspect]
     Indication: PSORIASIS
     Route: 058
     Dates: start: 20061103, end: 20061219
  2. METHOTREXATE [Suspect]
     Route: 065
     Dates: start: 20061223, end: 20070106

REACTIONS (7)
  - CARDIAC FAILURE CONGESTIVE [None]
  - EPISTAXIS [None]
  - LICHENOID KERATOSIS [None]
  - PANCYTOPENIA [None]
  - PUSTULAR PSORIASIS [None]
  - SKIN NECROSIS [None]
  - SKIN ULCER [None]
